FAERS Safety Report 16386926 (Version 1)
Quarter: 2019Q2

REPORT INFORMATION
  Report Type: Spontaneous
  Country: DE (occurrence: DE)
  Receive Date: 20190604
  Receipt Date: 20190604
  Transmission Date: 20190711
  Serious: Yes (Other)
  Sender: FDA-Public Use
  Company Number: DE-SUN PHARMACEUTICAL INDUSTRIES LTD-2019RR-209439

PATIENT
  Age: 84 Year
  Sex: Male
  Weight: 80 kg

DRUGS (2)
  1. NOVAMINSULFON 500 MG [Suspect]
     Active Substance: METAMIZOLE
     Indication: GENITAL PAIN
     Dosage: ()
     Route: 065
  2. CIPROFLOXACIN. [Suspect]
     Active Substance: CIPROFLOXACIN
     Indication: EPIDIDYMITIS
     Dosage: 2 TABLETTEN
     Route: 048
     Dates: start: 20181002, end: 20181025

REACTIONS (10)
  - Haematoma [Unknown]
  - Depressed mood [Unknown]
  - Musculoskeletal pain [Not Recovered/Not Resolved]
  - Syncope [Unknown]
  - Mobility decreased [Not Recovered/Not Resolved]
  - Fall [Unknown]
  - Tendon rupture [Recovered/Resolved with Sequelae]
  - Dizziness [Unknown]
  - Pain in extremity [Not Recovered/Not Resolved]
  - Loss of personal independence in daily activities [Not Recovered/Not Resolved]

NARRATIVE: CASE EVENT DATE: 2019
